FAERS Safety Report 10158512 (Version 2)
Quarter: 2014Q2

REPORT INFORMATION
  Report Type: Spontaneous
  Country: JP (occurrence: JP)
  Receive Date: 20140507
  Receipt Date: 20140507
  Transmission Date: 20141212
  Serious: Yes (Death, Hospitalization, Other)
  Sender: FDA-Public Use
  Company Number: PHHY2014JP054315

PATIENT
  Age: 62 Year
  Sex: Female

DRUGS (5)
  1. ZOLEDRONATE [Suspect]
     Indication: METASTASES TO BONE
     Dosage: 4 MG, PER MONTH
  2. ANASTROZOLE [Suspect]
     Indication: BREAST CANCER
  3. LEUPROLIDE [Suspect]
     Indication: METASTASES TO BONE
  4. TOREMIFENE [Suspect]
  5. TEGAFUR W/URACIL [Suspect]
     Indication: METASTASES TO BONE

REACTIONS (10)
  - Hepatic failure [Fatal]
  - Metastases to bone [Unknown]
  - Metastases to liver [Unknown]
  - Metastases to lymph nodes [Unknown]
  - Atypical femur fracture [Unknown]
  - Pain in extremity [Recovering/Resolving]
  - Deformity [Unknown]
  - Osteonecrosis of jaw [Unknown]
  - Fall [Unknown]
  - Bone lesion [Unknown]
